FAERS Safety Report 8572361-3 (Version None)
Quarter: 2012Q3

REPORT INFORMATION
  Report Type: 
  Country: None (occurrence: None)
  Receive Date: 20120806
  Receipt Date: 20120801
  Transmission Date: 20120928
  Serious: Yes (Other)
  Sender: FDA-Public Use
  Company Number: HU-ROCHE-1053856

PATIENT
  Sex: Female
  Weight: 74 kg

DRUGS (11)
  1. GLICLAZIDE [Concomitant]
  2. TAMIFLU [Suspect]
     Indication: INFLUENZA
     Route: 042
     Dates: start: 20120321
  3. RILMENIDINE [Concomitant]
  4. ATORVASTATIN [Concomitant]
  5. ALBUTEROL SULATE [Concomitant]
     Dates: start: 20120320
  6. PERINDOPRIL ARGININE [Concomitant]
  7. GLARGINE [Concomitant]
     Dates: start: 20080101
  8. AMBROXOL [Concomitant]
     Dates: start: 20120320
  9. CARVEDILOL [Concomitant]
  10. THEOPHYLLINE [Concomitant]
     Dates: start: 20120322
  11. INDAPAMIDE [Concomitant]

REACTIONS (1)
  - FALL [None]
